FAERS Safety Report 6802152-2 (Version None)
Quarter: 2010Q2

REPORT INFORMATION
  Report Type: 
  Country: None (occurrence: None)
  Receive Date: 20100629
  Receipt Date: 20080220
  Transmission Date: 20101027
  Serious: Yes (Hospitalization, Other)
  Sender: FDA-Public Use
  Company Number: US-PFIZER INC-2007031808

PATIENT
  Sex: Male
  Weight: 104.3 kg

DRUGS (2)
  1. BEXTRA [Suspect]
     Indication: ARTHRITIS
     Dates: start: 20030731
  2. CELEBREX [Suspect]
     Indication: ARTHRITIS
     Dates: start: 19990123

REACTIONS (1)
  - ACUTE MYOCARDIAL INFARCTION [None]
